FAERS Safety Report 9126964 (Version 1)
Quarter: 2013Q1

REPORT INFORMATION
  Report Type: Spontaneous
  Country: US (occurrence: US)
  Receive Date: 20130122
  Receipt Date: 20130122
  Transmission Date: 20140127
  Serious: Yes (Other)
  Sender: FDA-Public Use
  Company Number: PHEH2013US001687

PATIENT
  Sex: Female
  Weight: 62.59 kg

DRUGS (8)
  1. AFINITOR [Suspect]
     Indication: BREAST CANCER
     Dosage: 10 MG, UNK
  2. EXEMESTANE [Concomitant]
     Dosage: 25 MG, UNK
  3. ACTONEL [Concomitant]
     Dosage: 5 MG, UNK
  4. NEXUM [Concomitant]
     Dosage: 40 MG, UNK
  5. MULTIVIT [Concomitant]
  6. MINERALS NOS [Concomitant]
  7. TRIAMTEREN HCT [Concomitant]
  8. VITAMIN B6 [Concomitant]

REACTIONS (3)
  - Neuropathy peripheral [Unknown]
  - Stomatitis [Unknown]
  - Rash [Unknown]
